FAERS Safety Report 8678984 (Version 2)
Quarter: 2013Q4

REPORT INFORMATION
  Report Type: Spontaneous
  Country: US (occurrence: US)
  Receive Date: 20120724
  Receipt Date: 20131101
  Transmission Date: 20140711
  Serious: No
  Sender: FDA-Public Use
  Company Number: US-009507513-1206USA02130

PATIENT
  Age: 42 Year
  Sex: Female

DRUGS (3)
  1. EMEND [Suspect]
     Route: 048
     Dates: start: 20120611
  2. EMEND [Suspect]
     Dosage: 80 MG, UNK
     Route: 048
     Dates: start: 20120612
  3. EMEND [Suspect]
     Dosage: 80 MG, UNK
     Route: 048
     Dates: start: 20120613

REACTIONS (4)
  - Drug ineffective [Not Recovered/Not Resolved]
  - Nausea [Not Recovered/Not Resolved]
  - Product packaging quantity issue [Unknown]
  - Underdose [Unknown]
